FAERS Safety Report 24252411 (Version 1)
Quarter: 2024Q3

REPORT INFORMATION
  Report Type: Spontaneous
  Country: US (occurrence: US)
  Receive Date: 20240827
  Receipt Date: 20240827
  Transmission Date: 20241016
  Serious: No
  Sender: AMNEAL
  Company Number: US-AMNEAL PHARMACEUTICALS-2023-AMRX-04211

PATIENT
  Sex: Female

DRUGS (4)
  1. GUAIFENESIN [Suspect]
     Active Substance: GUAIFENESIN
     Indication: Product used for unknown indication
     Dosage: 600MG, EVERY 12HR
     Route: 048
     Dates: start: 20231102, end: 20231103
  2. GUAIFENESIN [Suspect]
     Active Substance: GUAIFENESIN
     Dosage: 400MG, DYE FREE EVERY 4-6 HOURS
     Route: 048
  3. GUAIFENESIN [Suspect]
     Active Substance: GUAIFENESIN
     Dosage: UNK
     Route: 048
  4. BENADRYL [Concomitant]
     Active Substance: DIPHENHYDRAMINE HYDROCHLORIDE
     Indication: Product used for unknown indication
     Dosage: 25 MILLIGRAM
     Route: 065

REACTIONS (4)
  - Urticaria [Recovered/Resolved]
  - Malaise [Unknown]
  - Dyspnoea [Unknown]
  - Rash pruritic [Recovered/Resolved]

NARRATIVE: CASE EVENT DATE: 20231103
